FAERS Safety Report 14775211 (Version 1)
Quarter: 2018Q2

REPORT INFORMATION
  Report Type: Spontaneous
  Country: PR (occurrence: PR)
  Receive Date: 20180418
  Receipt Date: 20180418
  Transmission Date: 20180711
  Serious: Yes (Hospitalization)
  Sender: FDA-Public Use
  Company Number: PR-MALLINCKRODT-T201801568

PATIENT
  Sex: Male

DRUGS (2)
  1. H.P. ACTHAR [Suspect]
     Active Substance: CORTICOTROPIN
     Indication: GLOMERULONEPHRITIS MEMBRANOUS
     Dosage: 80 UNITS TWICE A WEEKLY
     Route: 058
     Dates: start: 201803, end: 201804
  2. H.P. ACTHAR [Suspect]
     Active Substance: CORTICOTROPIN
     Indication: NEPHROTIC SYNDROME

REACTIONS (3)
  - Blood glucose increased [Unknown]
  - Oedema [Unknown]
  - Blood creatinine increased [Unknown]
